FAERS Safety Report 8837253 (Version 1)
Quarter: 2012Q4

REPORT INFORMATION
  Report Type: 
  Country: SE (occurrence: SE)
  Receive Date: 20121012
  Receipt Date: 20121012
  Transmission Date: 20130627
  Serious: Yes (Hospitalization)
  Sender: FDA-Public Use
  Company Number: SE-JNJFOC-20121004798

PATIENT
  Age: 39 Year
  Sex: Female

DRUGS (6)
  1. PREZISTA [Suspect]
     Indication: HIV INFECTION
     Dosage: 6 months treatment
     Route: 048
     Dates: start: 20120207, end: 20120723
  2. KIVEXA [Suspect]
     Indication: HIV INFECTION
     Dosage: 3 years treatment
     Route: 048
     Dates: start: 20120207, end: 20120723
  3. NORVIR [Suspect]
     Indication: HIV INFECTION
     Dosage: 6 months treatment
     Route: 048
     Dates: start: 20120207, end: 20120723
  4. KALCIPOS-D [Concomitant]
     Route: 065
  5. IRON POLYSACCHARIDE [Concomitant]
     Route: 065
  6. ERGOCALCIFEROL [Concomitant]
     Route: 065

REACTIONS (2)
  - Cholelithiasis [Not Recovered/Not Resolved]
  - Nausea [Recovering/Resolving]
